FAERS Safety Report 9169812 (Version 2)
Quarter: 2013Q3

REPORT INFORMATION
  Report Type: Spontaneous
  Country: FR (occurrence: FR)
  Receive Date: 20130318
  Receipt Date: 20130729
  Transmission Date: 20140515
  Serious: Yes (Disabling)
  Sender: FDA-Public Use
  Company Number: FR-ABBOTT-13X-056-1063869-00

PATIENT
  Age: 29 Year
  Sex: Male

DRUGS (6)
  1. ZECLAR [Suspect]
     Indication: MYCOBACTERIUM AVIUM COMPLEX INFECTION
     Route: 048
     Dates: start: 20120905, end: 20130215
  2. DEXAMBUTOL [Suspect]
     Indication: MYCOBACTERIUM AVIUM COMPLEX INFECTION
     Route: 048
     Dates: start: 20120821, end: 20130215
  3. DEXAMBUTOL [Suspect]
     Dosage: DURING HEMODIALYSIS PERIODS
  4. ANSATIPINE [Suspect]
     Indication: MYCOBACTERIUM AVIUM COMPLEX INFECTION
     Route: 048
     Dates: start: 20121023, end: 20130131
  5. ISONIAZID [Concomitant]
     Indication: LYMPH NODE TUBERCULOSIS
     Route: 048
     Dates: start: 20120821, end: 20121019
  6. ISONIAZID [Concomitant]
     Dates: start: 20130201, end: 20130215

REACTIONS (4)
  - Optic neuritis [Not Recovered/Not Resolved]
  - Uveitis [Recovered/Resolved]
  - Colour blindness acquired [Not Recovered/Not Resolved]
  - Blindness [Not Recovered/Not Resolved]
